FAERS Safety Report 12316935 (Version 2)
Quarter: 2016Q2

REPORT INFORMATION
  Report Type: Report from Study
  Country: BE (occurrence: BE)
  Receive Date: 20160429
  Receipt Date: 20160511
  Transmission Date: 20160815
  Serious: Yes (Hospitalization, Other)
  Sender: FDA-Public Use
  Company Number: BE-BRISTOL-MYERS SQUIBB COMPANY-BMS-2016-026306

PATIENT
  Age: 69 Year
  Sex: Female
  Weight: 88.1 kg

DRUGS (9)
  1. APIXABAN [Suspect]
     Active Substance: APIXABAN
     Indication: CEREBROVASCULAR ACCIDENT PROPHYLAXIS
     Dosage: 0.8 ML, UNK
     Route: 058
     Dates: start: 20160405, end: 20160407
  2. EXTERNAL-NADROPARIN CALCIUM [Suspect]
     Active Substance: NADROPARIN CALCIUM
     Dosage: 0.8 UNK, UNK
     Route: 058
     Dates: start: 20160311
  3. EXTERNAL-NADROPARIN CALCIUM [Suspect]
     Active Substance: NADROPARIN CALCIUM
     Indication: ATRIAL FIBRILLATION
     Dosage: 0.8 UNK, UNK
     Route: 058
     Dates: start: 20160312, end: 20160412
  4. EMCONCOR [Concomitant]
     Active Substance: BISOPROLOL FUMARATE
     Indication: PRODUCT USED FOR UNKNOWN INDICATION
     Dosage: UNK
     Route: 065
     Dates: start: 20160312, end: 20160413
  5. LOORTAN [Concomitant]
     Indication: PRODUCT USED FOR UNKNOWN INDICATION
     Route: 065
  6. ENOXAPARIN SODIUM. [Suspect]
     Active Substance: ENOXAPARIN SODIUM
     Indication: ATRIAL FIBRILLATION
     Dosage: 80 MG, UNK
     Route: 058
     Dates: start: 20160311, end: 20160311
  7. EXTERNAL-NADROPARIN CALCIUM [Suspect]
     Active Substance: NADROPARIN CALCIUM
     Dosage: 0.8 UNK, UNK
     Route: 058
     Dates: start: 20160407, end: 20160411
  8. EXTERNAL-NADROPARIN CALCIUM [Suspect]
     Active Substance: NADROPARIN CALCIUM
     Dosage: 0.8 UNK, UNK
     Route: 058
     Dates: start: 20160312, end: 20160405
  9. TRIATEC                            /00116401/ [Concomitant]
     Active Substance: ACETAMINOPHEN\CODEINE PHOSPHATE
     Indication: PRODUCT USED FOR UNKNOWN INDICATION
     Dosage: UNK
     Route: 065
     Dates: start: 20160312

REACTIONS (3)
  - Ventricular hypertrophy [Recovered/Resolved]
  - Hypertrophic cardiomyopathy [Recovered/Resolved]
  - Atrial fibrillation [Recovered/Resolved]

NARRATIVE: CASE EVENT DATE: 20160405
